FAERS Safety Report 6775348-6 (Version None)
Quarter: 2010Q2

REPORT INFORMATION
  Report Type: 
  Country: None (occurrence: None)
  Receive Date: 20100617
  Receipt Date: 20100610
  Transmission Date: 20101027
  Serious: Yes (Other)
  Sender: FDA-Public Use
  Company Number: BR-ELI_LILLY_AND_COMPANY-BR201006003694

PATIENT
  Age: 64 Year
  Sex: Female

DRUGS (9)
  1. BYETTA [Suspect]
     Dosage: 5 UG, UNKNOWN
     Route: 065
     Dates: start: 20090711
  2. BYETTA [Suspect]
     Dosage: 10 UG, UNKNOWN
     Route: 065
     Dates: start: 20090904
  3. BYETTA [Suspect]
     Dosage: 5 UG, UNKNOWN
     Route: 065
     Dates: start: 20100326, end: 20100423
  4. AMARYL [Concomitant]
  5. ACTOS /BRA/ [Concomitant]
  6. METFORMIN HYDROCHLORIDE [Concomitant]
  7. XENICAL [Concomitant]
  8. ZOLOFT [Concomitant]
  9. SYNTHROID [Concomitant]

REACTIONS (1)
  - RENAL FAILURE [None]
